FAERS Safety Report 9015154 (Version 2)
Quarter: 2013Q1

REPORT INFORMATION
  Report Type: Spontaneous
  Country: US (occurrence: None)
  Receive Date: 20130103
  Receipt Date: 20130114
  Transmission Date: 20140127
  Serious: Yes (Hospitalization)
  Sender: FDA-Public Use
  Company Number: XL18412002309

PATIENT
  Age: 72 Year
  Sex: Male
  Weight: 61.7 kg

DRUGS (14)
  1. COMETRIQ [Suspect]
     Indication: THYROID CANCER
     Route: 048
     Dates: start: 20080512
  2. KAOPECTATE [Concomitant]
  3. LOMOTIL [Concomitant]
  4. OXYCODONE [Concomitant]
  5. ASA (ACETYLSALICYLIC ACID) [Concomitant]
  6. HYDROCHLOROTHIAZIDE [Concomitant]
  7. PROTONIX [Concomitant]
  8. CALCITRIOL [Concomitant]
  9. CALCIUM CARBONATE + VITAMIN D [Concomitant]
  10. MULTIVITAMIN [Concomitant]
  11. ZOMETA (ZOLEDRONIC ACID) [Concomitant]
  12. AMLODIPINE (AMLODIPINE) [Concomitant]
  13. AVAPRO (IRBESARTAN) [Concomitant]
  14. ADVIL (IBUPROFEN) [Concomitant]

REACTIONS (11)
  - Sepsis [None]
  - Abdominal pain [None]
  - Nausea [None]
  - Vomiting [None]
  - Diarrhoea [None]
  - Febrile neutropenia [None]
  - Blood urea increased [None]
  - Blood lactic acid increased [None]
  - Abdominal infection [None]
  - Colitis [None]
  - Diverticulum [None]
